FAERS Safety Report 7769916-2 (Version None)
Quarter: 2011Q3

REPORT INFORMATION
  Report Type: 
  Country: None (occurrence: None)
  Receive Date: 20110922
  Receipt Date: 20110919
  Transmission Date: 20111222
  Serious: Yes (Hospitalization)
  Sender: FDA-Public Use
  Company Number: US-GLAXOSMITHKLINE-A0884291A

PATIENT
  Age: 33 Year
  Sex: Female
  Weight: 136.4 kg

DRUGS (12)
  1. LAMOTRIGINE [Suspect]
     Indication: BIPOLAR DISORDER
     Dosage: 300MG PER DAY
     Route: 048
     Dates: end: 20100501
  2. FAMOTIDINE [Concomitant]
  3. GEODON [Concomitant]
  4. KLONOPIN [Concomitant]
  5. METFORMIN [Concomitant]
  6. ACTOS [Concomitant]
  7. HYDROCHLOROTHIAZIDE [Concomitant]
  8. LAMOTRIGINE [Suspect]
     Dosage: 300MG PER DAY
     Route: 048
     Dates: end: 20100501
  9. ADVAIR DISKUS 100/50 [Concomitant]
  10. LISINOPRIL [Concomitant]
  11. LAMICTAL [Suspect]
     Indication: BIPOLAR DISORDER
     Dosage: 400MG PER DAY
     Route: 048
     Dates: end: 20100501
  12. SIMVASTATIN [Concomitant]

REACTIONS (4)
  - ERYSIPELAS [None]
  - STEVENS-JOHNSON SYNDROME [None]
  - HYPERSENSITIVITY [None]
  - RASH [None]
